FAERS Safety Report 7920543-3 (Version None)
Quarter: 2011Q4

REPORT INFORMATION
  Report Type: 
  Country: None (occurrence: None)
  Receive Date: 20111117
  Receipt Date: 20111111
  Transmission Date: 20120403
  Serious: Yes (Life-Threatening, Hospitalization)
  Sender: FDA-Public Use
  Company Number: PHHY2011AR96616

PATIENT
  Sex: Female

DRUGS (2)
  1. EXELON [Suspect]
     Indication: MEMORY IMPAIRMENT
     Dosage: PATCH 10 CM, 1 PATCH DAILY
     Route: 062
     Dates: start: 20110913
  2. EXELON [Suspect]
     Dosage: PATCH 5 CM
     Route: 062
     Dates: start: 20111014

REACTIONS (9)
  - MENTAL DISORDER [None]
  - VOMITING [None]
  - SENSORY DISTURBANCE [None]
  - APPLICATION SITE PRURITUS [None]
  - DRY SKIN [None]
  - DYSPNOEA [None]
  - APPLICATION SITE ERYTHEMA [None]
  - HYPERTENSION [None]
  - PETECHIAE [None]
